FAERS Safety Report 5269303-5 (Version None)
Quarter: 2007Q1

REPORT INFORMATION
  Report Type: 
  Country: None (occurrence: None)
  Receive Date: 20070319
  Receipt Date: 20070309
  Transmission Date: 20070707
  Serious: Yes (Life-Threatening, Hospitalization)
  Sender: FDA-Public Use
  Company Number: DE-PFIZER INC-2007016526

PATIENT
  Sex: Female

DRUGS (5)
  1. CAMPTOSAR [Suspect]
     Indication: METASTATIC GASTRIC CANCER
  2. CETUXIMAB [Suspect]
     Indication: METASTATIC GASTRIC CANCER
  3. FOLINIC ACID [Suspect]
     Indication: METASTATIC GASTRIC CANCER
  4. FLUOROURACIL [Suspect]
     Indication: METASTATIC GASTRIC CANCER
  5. ZOMETA [Suspect]
     Indication: HYPERCALCAEMIA
     Dosage: DAILY DOSE:4MG
     Dates: start: 20070223, end: 20070223

REACTIONS (1)
  - HYPOCALCAEMIA [None]
